FAERS Safety Report 7249309-7 (Version None)
Quarter: 2011Q1

REPORT INFORMATION
  Report Type: 
  Country: None (occurrence: None)
  Receive Date: 20110128
  Receipt Date: 20101129
  Transmission Date: 20110831
  Serious: Yes (Hospitalization, Other)
  Sender: FDA-Public Use
  Company Number: US-BAYER-201036982NA

PATIENT
  Sex: Female
  Weight: 98.866 kg

DRUGS (7)
  1. YAZ [Suspect]
     Indication: PREMENSTRUAL SYNDROME
     Route: 048
     Dates: start: 20060806, end: 20071210
  2. PROPRANOLOL [Concomitant]
     Dosage: UNK
     Dates: start: 20090101
  3. DARVOCET [Concomitant]
     Indication: PAIN
     Dosage: UNK
     Dates: start: 20030101, end: 20090101
  4. ALDACTONE [Concomitant]
     Indication: HYPERTENSION
     Dosage: UNK
     Dates: start: 20060101
  5. ANTIBIOTICS [Concomitant]
     Dosage: UNK
     Dates: start: 20000101
  6. TRIAMTERENE [Concomitant]
     Dosage: UNK
     Dates: start: 20100101
  7. LISINOPRIL [Concomitant]
     Indication: HYPERTENSION
     Dosage: UNK
     Dates: start: 20070101

REACTIONS (5)
  - CHOLELITHIASIS [None]
  - CHOLECYSTITIS CHRONIC [None]
  - BACK PAIN [None]
  - CHOLESTEROSIS [None]
  - CEREBROVASCULAR ACCIDENT [None]
